FAERS Safety Report 9807395 (Version 3)
Quarter: 2014Q1

REPORT INFORMATION
  Report Type: Report from Study
  Country: DK (occurrence: DK)
  Receive Date: 20140110
  Receipt Date: 20140203
  Transmission Date: 20141002
  Serious: Yes (Other)
  Sender: FDA-Public Use
  Company Number: DK-AMGEN-DNKCT2013091837

PATIENT
  Age: 68 Year
  Sex: Female

DRUGS (3)
  1. ETANERCEPT [Suspect]
     Indication: RHEUMATOID ARTHRITIS
     Dosage: 50 MG, WEEKLY
     Route: 065
     Dates: start: 20120328
  2. ARAVA [Concomitant]
     Dosage: UNK
     Dates: start: 20111212
  3. PLAQUENIL                          /00072603/ [Concomitant]
     Dosage: UNK
     Dates: start: 20120130

REACTIONS (1)
  - Lung neoplasm malignant [Not Recovered/Not Resolved]
